FAERS Safety Report 9751847 (Version 1)
Quarter: 2013Q4

REPORT INFORMATION
  Report Type: Spontaneous
  Country: US (occurrence: US)
  Receive Date: 20131213
  Receipt Date: 20131213
  Transmission Date: 20140711
  Serious: No
  Sender: FDA-Public Use
  Company Number: US-BIOGENIDEC-2013BI006461

PATIENT
  Sex: Female

DRUGS (2)
  1. AVONEX [Suspect]
     Indication: MULTIPLE SCLEROSIS
     Route: 030
     Dates: start: 20121118, end: 201212
  2. COPAXONE [Concomitant]

REACTIONS (4)
  - Condition aggravated [Unknown]
  - Crying [Unknown]
  - Depression [Recovered/Resolved]
  - Fatigue [Recovered/Resolved]
